FAERS Safety Report 4383940-1 (Version None)
Quarter: 2004Q2

REPORT INFORMATION
  Report Type: 
  Country: None (occurrence: None)
  Receive Date: 20040621
  Receipt Date: 20040607
  Transmission Date: 20050107
  Serious: Yes (Hospitalization, Congenital Anomaly)
  Sender: FDA-Public Use
  Company Number: FR-JNJFOC-20040602430

PATIENT
  Age: 1 Day
  Sex: Male
  Weight: 3.3 kg

DRUGS (4)
  1. RISPERDAL [Suspect]
     Indication: ADVERSE EVENT
     Dosage: 4 DOSE (S), IN 1 DAY, INTRA-UTERINE
     Route: 015
     Dates: end: 20040321
  2. VALPROATE SODIUM [Suspect]
     Indication: DRUG USE FOR UNKNOWN INDICATION
     Dosage: 1200 MG, IN 1 DAY, INTRAUTERINE
     Route: 015
     Dates: end: 20040321
  3. VALIUM [Concomitant]
  4. TRANDATE [Concomitant]

REACTIONS (9)
  - CONGENITAL ANOMALY [None]
  - DRUG EXPOSURE DURING PREGNANCY [None]
  - DRUG INTERACTION [None]
  - DYSTONIA [None]
  - EAR MALFORMATION [None]
  - FACIAL DYSMORPHISM [None]
  - HYPOTONIA NEONATAL [None]
  - LIP DISORDER [None]
  - POOR SUCKING REFLEX [None]
